FAERS Safety Report 19124399 (Version 4)
Quarter: 2022Q1

REPORT INFORMATION
  Report Type: Report from Study
  Country: US (occurrence: US)
  Receive Date: 20210412
  Receipt Date: 20220210
  Transmission Date: 20220423
  Serious: No
  Sender: FDA-Public Use
  Company Number: NVSC2021US080877

PATIENT
  Age: 78 Year
  Sex: Male

DRUGS (2)
  1. ENTRESTO [Suspect]
     Active Substance: SACUBITRIL\VALSARTAN
     Indication: Cardiac failure
     Dosage: 100 MG, BID
     Route: 048
     Dates: start: 20210211
  2. ENTRESTO [Suspect]
     Active Substance: SACUBITRIL\VALSARTAN
     Dosage: 49.51 MG, BID
     Route: 048
     Dates: start: 20210211

REACTIONS (8)
  - Pain in extremity [Unknown]
  - Decreased activity [Unknown]
  - Cardiac disorder [Not Recovered/Not Resolved]
  - Hyponatraemic syndrome [Unknown]
  - Hypoglycaemia [Unknown]
  - Fatigue [Unknown]
  - Blood pressure decreased [Unknown]
  - Renal disorder [Not Recovered/Not Resolved]

NARRATIVE: CASE EVENT DATE: 20210201
